FAERS Safety Report 5537465-8 (Version None)
Quarter: 2007Q4

REPORT INFORMATION
  Report Type: 
  Country: None (occurrence: None)
  Receive Date: 20071207
  Receipt Date: 20071129
  Transmission Date: 20080405
  Serious: Yes (Other)
  Sender: FDA-Public Use
  Company Number: CN-ASTRAZENECA-2007AP07636

PATIENT
  Age: 20 Year
  Sex: Female
  Weight: 53 kg

DRUGS (13)
  1. PROPOFOL [Suspect]
     Indication: INDUCTION OF ANAESTHESIA
     Route: 042
     Dates: start: 20071127, end: 20071127
  2. PROPOFOL [Interacting]
     Indication: MAINTENANCE OF ANAESTHESIA
     Route: 042
     Dates: start: 20071127, end: 20071127
  3. PROPOFOL [Interacting]
     Dosage: 35ML/HR VIA MINI PUMP
     Route: 041
     Dates: start: 20071127, end: 20071127
  4. PROPOFOL [Interacting]
     Dosage: 35ML/HR VIA MINI PUMP
     Route: 041
     Dates: start: 20071127, end: 20071127
  5. REMIFENTANIL [Interacting]
     Indication: INDUCTION AND MAINTENANCE OF ANAESTHESIA
     Dosage: INFUSING DURATION}1 MIN
     Route: 041
     Dates: start: 20071127, end: 20071127
  6. REMIFENTANIL [Interacting]
     Route: 041
     Dates: start: 20071127, end: 20071127
  7. SCOLINE [Concomitant]
     Indication: INDUCTION OF ANAESTHESIA
     Route: 042
     Dates: start: 20071127, end: 20071127
  8. VECURONIUM BROMIDE [Concomitant]
     Indication: INDUCTION OF ANAESTHESIA
     Route: 042
     Dates: start: 20071127, end: 20071127
  9. MIDAZOLAM HCL [Concomitant]
     Indication: INDUCTION OF ANAESTHESIA
     Route: 042
     Dates: start: 20071127, end: 20071127
  10. MIDAZOLAM HCL [Concomitant]
     Indication: MAINTENANCE OF ANAESTHESIA
     Route: 042
     Dates: start: 20071127, end: 20071127
  11. MIDAZOLAM HCL [Concomitant]
     Route: 042
  12. MIDAZOLAM HCL [Concomitant]
     Route: 042
  13. ENFLURANE [Concomitant]
     Indication: MAINTENANCE OF ANAESTHESIA
     Route: 055

REACTIONS (2)
  - DRUG INTERACTION [None]
  - OPISTHOTONUS [None]
